FAERS Safety Report 14709366 (Version 2)
Quarter: 2018Q2

REPORT INFORMATION
  Report Type: Spontaneous
  Country: US (occurrence: US)
  Receive Date: 20180403
  Receipt Date: 20180404
  Transmission Date: 20180711
  Serious: No
  Sender: FDA-Public Use
  Company Number: US-BAYER-2018-061476

PATIENT
  Sex: Female

DRUGS (2)
  1. RIOCIGUAT (GUANYLATE CYCLASE STIMULATOR) [Suspect]
     Active Substance: RIOCIGUAT
     Indication: PRODUCT USED FOR UNKNOWN INDICATION
     Dosage: UNK
  2. REMODULIN [Suspect]
     Active Substance: TREPROSTINIL
     Indication: PULMONARY ARTERIAL HYPERTENSION
     Dosage: 7 NG/KG/MIN
     Route: 058
     Dates: start: 20180216

REACTIONS (11)
  - Dizziness [Recovering/Resolving]
  - Dyspnoea [Unknown]
  - Constipation [Unknown]
  - Pain [Unknown]
  - Oxygen saturation decreased [Unknown]
  - Peripheral swelling [Recovering/Resolving]
  - Gastrooesophageal reflux disease [Unknown]
  - Nausea [Recovered/Resolved]
  - Pain in jaw [Recovered/Resolved]
  - Hypotension [Recovered/Resolved]
  - Feeling abnormal [Unknown]

NARRATIVE: CASE EVENT DATE: 20180301
